FAERS Safety Report 5847190-1 (Version None)
Quarter: 2008Q3

REPORT INFORMATION
  Report Type: 
  Country: None (occurrence: None)
  Receive Date: 20080815
  Receipt Date: 20080813
  Transmission Date: 20090109
  Serious: Yes (Death)
  Sender: FDA-Public Use
  Company Number: JP-ASTRAZENECA-2008AP01253

PATIENT
  Age: 10917 Day
  Sex: Male
  Weight: 70 kg

DRUGS (3)
  1. XYLOCAINE VISCOUS [Suspect]
     Indication: LOCAL ANAESTHESIA
     Route: 049
     Dates: start: 20080220, end: 20080220
  2. GASCON [Concomitant]
     Indication: LOCAL ANAESTHESIA
     Route: 048
     Dates: start: 20080220, end: 20080220
  3. RISPERDAL [Concomitant]
     Indication: SCHIZOPHRENIA
     Route: 048

REACTIONS (1)
  - SHOCK [None]
